FAERS Safety Report 4294446-2 (Version None)
Quarter: 2004Q1

REPORT INFORMATION
  Report Type: 
  Country: None (occurrence: None)
  Receive Date: 20040204
  Receipt Date: 20040128
  Transmission Date: 20041129
  Serious: Yes (Hospitalization)
  Sender: FDA-Public Use
  Company Number: 2004AP00538

PATIENT
  Age: 80 Year
  Sex: Male

DRUGS (10)
  1. IRESSA [Suspect]
     Indication: NON-SMALL CELL LUNG CANCER
     Dosage: 250 MG DAILY PO
     Route: 048
     Dates: start: 20030604, end: 20030826
  2. IRESSA [Suspect]
     Indication: NON-SMALL CELL LUNG CANCER
     Dosage: 250 MG DAILY PO
     Route: 048
     Dates: start: 20030905, end: 20030919
  3. IRESSA [Suspect]
     Indication: NON-SMALL CELL LUNG CANCER
     Dosage: 250 MG DAILY PO
     Route: 048
  4. URSO [Concomitant]
  5. DIART [Concomitant]
  6. LOXONIN [Concomitant]
  7. CYTOTEC [Concomitant]
  8. ZYLORIC ^FAES^ [Concomitant]
  9. HYSRON [Concomitant]
  10. SELBEX [Concomitant]

REACTIONS (6)
  - DEHYDRATION [None]
  - DRY SKIN [None]
  - LYMPHANGIOSIS CARCINOMATOSA [None]
  - MALIGNANT NEOPLASM PROGRESSION [None]
  - METASTASES TO LIVER [None]
  - RENAL IMPAIRMENT [None]
